FAERS Safety Report 8393147-9 (Version None)
Quarter: 2012Q2

REPORT INFORMATION
  Report Type: 
  Country: None (occurrence: None)
  Receive Date: 20120529
  Receipt Date: 20120502
  Transmission Date: 20120825
  Serious: No
  Sender: FDA-Public Use
  Company Number: US-ABBOTT-12P-163-0931875-00

PATIENT
  Sex: Male
  Weight: 97.61 kg

DRUGS (5)
  1. ASPIRIN [Concomitant]
     Indication: CARDIOVASCULAR EVENT PROPHYLAXIS
     Dosage: 81MG DAILY
  2. ANDROGEL [Suspect]
     Indication: BLOOD TESTOSTERONE DECREASED
     Route: 061
     Dates: start: 20120101, end: 20120501
  3. CRESTOR [Concomitant]
     Indication: BLOOD CHOLESTEROL
  4. DIOVAN [Concomitant]
     Indication: BLOOD PRESSURE
  5. ANDROGEL [Suspect]
     Route: 061
     Dates: start: 20120502

REACTIONS (2)
  - WEIGHT INCREASED [None]
  - BLOOD TESTOSTERONE DECREASED [None]
